FAERS Safety Report 4552699-7 (Version None)
Quarter: 2005Q1

REPORT INFORMATION
  Report Type: 
  Country: None (occurrence: None)
  Receive Date: 20050112
  Receipt Date: 20050112
  Transmission Date: 20050727
  Serious: No
  Sender: FDA-Public Use
  Company Number: None

PATIENT
  Sex: Female
  Weight: 66.6788 kg

DRUGS (1)
  1. ZOCOR [Suspect]
     Indication: BLOOD CHOLESTEROL INCREASED
     Dosage: 80MG  1/2 TABLET QHS ORAL
     Route: 048
     Dates: start: 19980725, end: 20041228

REACTIONS (3)
  - APHONIA [None]
  - DYSPHEMIA [None]
  - SPEECH DISORDER [None]
